FAERS Safety Report 26207770 (Version 1)
Quarter: 2025Q4

REPORT INFORMATION
  Report Type: Spontaneous
  Country: US (occurrence: None)
  Receive Date: 20251225
  Receipt Date: 20251225
  Transmission Date: 20260119
  Serious: Yes (Life-Threatening, Disabling, Other)
  Sender: FDA-CTU
  Company Number: None

PATIENT
  Age: 49 Year
  Sex: Female
  Weight: 67.5 kg

DRUGS (8)
  1. CIPROFLOXACIN [Suspect]
     Active Substance: CIPROFLOXACIN
  2. LEXAPRO [Concomitant]
     Active Substance: ESCITALOPRAM OXALATE
  3. back brace [Concomitant]
  4. neck brace [Concomitant]
  5. shower chair [Concomitant]
  6. ice packs [Concomitant]
  7. heating pads [Concomitant]
  8. ELECTROLYTES NOS [Concomitant]
     Active Substance: ELECTROLYTES NOS

REACTIONS (8)
  - Neuromyopathy [None]
  - Tendon disorder [None]
  - Joint dislocation [None]
  - Nerve injury [None]
  - Muscular weakness [None]
  - Hypoaesthesia [None]
  - Hypoaesthesia [None]
  - Asthenopia [None]

NARRATIVE: CASE EVENT DATE: 20251126
